FAERS Safety Report 8580250-3 (Version None)
Quarter: 2012Q3

REPORT INFORMATION
  Report Type: 
  Country: None (occurrence: None)
  Receive Date: 20120808
  Receipt Date: 20120802
  Transmission Date: 20120928
  Serious: Yes (Death, Life-Threatening, Hospitalization)
  Sender: FDA-Public Use
  Company Number: GXKR2012DE002518

PATIENT

DRUGS (1)
  1. ASPIRIN [Suspect]
     Indication: HYPERTENSION

REACTIONS (1)
  - CEREBRAL HAEMORRHAGE [None]
